FAERS Safety Report 5638402-8 (Version None)
Quarter: 2008Q1

REPORT INFORMATION
  Report Type: 
  Country: None (occurrence: None)
  Receive Date: 20080131
  Receipt Date: 20071116
  Transmission Date: 20080703
  Serious: No
  Sender: FDA-Public Use
  Company Number: 163-21880-07101429

PATIENT
  Age: 57 Year
  Sex: Male

DRUGS (2)
  1. REVLIMID [Suspect]
     Indication: MULTIPLE MYELOMA
     Dosage: 25 MG, DAILY X 21 DAYS, ORAL
     Route: 048
     Dates: start: 20070924
  2. AREDIA [Concomitant]

REACTIONS (6)
  - BLOOD COUNT ABNORMAL [None]
  - BONE PAIN [None]
  - CONSTIPATION [None]
  - DYSPNOEA [None]
  - LIBIDO DECREASED [None]
  - MUSCLE SPASMS [None]
